FAERS Safety Report 7114217-9 (Version None)
Quarter: 2010Q4

REPORT INFORMATION
  Report Type: 
  Country: None (occurrence: None)
  Receive Date: 20101119
  Receipt Date: 20101115
  Transmission Date: 20110411
  Serious: No
  Sender: FDA-Public Use
  Company Number: US-AMGEN-USASP2010000570

PATIENT

DRUGS (5)
  1. NPLATE [Suspect]
     Indication: IDIOPATHIC THROMBOCYTOPENIC PURPURA
     Dosage: 87 A?G, UNK
     Dates: start: 20100428, end: 20100506
  2. NPLATE [Suspect]
     Dates: start: 20100428, end: 20100506
  3. CORTICOSTEROID NOS [Concomitant]
     Dosage: UNK
     Dates: start: 20100101
  4. IMMUNE GLOBULIN NOS [Concomitant]
     Dosage: UNK
     Route: 042
     Dates: start: 20100101
  5. RITUXIMAB [Concomitant]
     Dosage: UNK
     Dates: start: 20100415, end: 20100506

REACTIONS (1)
  - SKIN DISCOLOURATION [None]
